FAERS Safety Report 26074297 (Version 1)
Quarter: 2025Q4

REPORT INFORMATION
  Report Type: Spontaneous
  Country: GB (occurrence: GB)
  Receive Date: 20251121
  Receipt Date: 20251121
  Transmission Date: 20260118
  Serious: Yes (Other)
  Sender: AUROBINDO
  Company Number: GB-MHRA-EMIS-7502-e37a12e5-933c-4787-a65e-3887dc975cf2

PATIENT
  Age: 19 Year
  Sex: Female
  Weight: 29 kg

DRUGS (2)
  1. SUMATRIPTAN [Suspect]
     Active Substance: SUMATRIPTAN
     Indication: Migraine
     Dosage: TAKE ONE TABLET FOR MIGRAINE ATTACK. IF SYMPTOMS COME BACK, TAKE ONE TABLET AT LEAST TWO HOURS AFTER FIRST DOSE.
     Route: 065
  2. Slynd 4mg tablets (Exeltis UK Ltd) [Concomitant]
     Indication: Product used for unknown indication
     Dosage: 4 MILLIGRAM, ONCE A DAY (IN ORDER OF PACKET)
     Route: 065
     Dates: start: 20251023

REACTIONS (4)
  - Vomiting projectile [Unknown]
  - Dizziness [Unknown]
  - Tremor [Unknown]
  - Chills [Unknown]

NARRATIVE: CASE EVENT DATE: 20251023
